FAERS Safety Report 20845127 (Version 1)
Quarter: 2022Q2

REPORT INFORMATION
  Report Type: Spontaneous
  Country: FR (occurrence: None)
  Receive Date: 20220518
  Receipt Date: 20220518
  Transmission Date: 20220721
  Serious: Yes (Death, Life-Threatening, Hospitalization, Other)
  Sender: FDA-Public Use
  Company Number: 2022A186928

PATIENT
  Age: 84 Year

DRUGS (2)
  1. DAPAGLIFLOZIN [Suspect]
     Active Substance: DAPAGLIFLOZIN
     Indication: Type 2 diabetes mellitus
     Route: 048
  2. METFORMIN HYDROCHLORIDE [Concomitant]
     Active Substance: METFORMIN HYDROCHLORIDE

REACTIONS (7)
  - Acute kidney injury [Fatal]
  - Malaise [Fatal]
  - Calculus urethral [Fatal]
  - Polyuria [Fatal]
  - Vomiting [Fatal]
  - Diarrhoea [Fatal]
  - Type 2 diabetes mellitus [Fatal]
